FAERS Safety Report 13456272 (Version 1)
Quarter: 2017Q2

REPORT INFORMATION
  Report Type: Spontaneous
  Country: US (occurrence: US)
  Receive Date: 20170419
  Receipt Date: 20170419
  Transmission Date: 20170830
  Serious: Yes (Disabling, Other)
  Sender: FDA-Public Use
  Company Number: None

PATIENT
  Age: 55 Year
  Sex: Female
  Weight: 59.42 kg

DRUGS (29)
  1. MEDICINAL MARIJUANA [Concomitant]
  2. WELLBUTRIN [Suspect]
     Active Substance: BUPROPION HYDROCHLORIDE
     Indication: ANXIETY
     Dosage: ?          QUANTITY:?/ FAME;?
     Route: 048
     Dates: start: 2005, end: 2009
  3. NORCO [Suspect]
     Active Substance: ACETAMINOPHEN\HYDROCODONE BITARTRATE
  4. CARAFATE [Concomitant]
     Active Substance: SUCRALFATE
  5. NAPROXEN. [Concomitant]
     Active Substance: NAPROXEN
  6. ALPRAZOLAM. [Concomitant]
     Active Substance: ALPRAZOLAM
  7. ZINC. [Concomitant]
     Active Substance: ZINC
  8. ADDERALL [Concomitant]
     Active Substance: AMPHETAMINE ASPARTATE\AMPHETAMINE SULFATE\DEXTROAMPHETAMINE SACCHARATE\DEXTROAMPHETAMINE SULFATE
  9. WELLBUTRIN [Suspect]
     Active Substance: BUPROPION HYDROCHLORIDE
     Indication: FIBROMYALGIA
     Dosage: ?          QUANTITY:?/ FAME;?
     Route: 048
     Dates: start: 2005, end: 2009
  10. SERTRALINE [Concomitant]
     Active Substance: SERTRALINE HYDROCHLORIDE
  11. B-12 COMPLEX [Concomitant]
  12. XANAX [Concomitant]
     Active Substance: ALPRAZOLAM
  13. DICLOPHENAC [Concomitant]
     Active Substance: DICLOFENAC SODIUM
  14. KETAMINE [Concomitant]
     Active Substance: KETAMINE
  15. IRON [Concomitant]
     Active Substance: IRON
  16. LACTAID [Concomitant]
     Active Substance: LACTASE
  17. MORPHINE [Concomitant]
     Active Substance: MORPHINE
  18. NEXIUM [Concomitant]
     Active Substance: ESOMEPRAZOLE MAGNESIUM
  19. COPPER [Concomitant]
     Active Substance: COPPER
  20. DKGL 1 (COMPOUND CREAM) [Concomitant]
  21. OXYMORPHINE [Concomitant]
     Active Substance: OXYMORPHONE
  22. OXYCONTIN [Concomitant]
     Active Substance: OXYCODONE HYDROCHLORIDE
  23. LIDOCAINE. [Concomitant]
     Active Substance: LIDOCAINE
  24. GAS-X [Concomitant]
     Active Substance: DIMETHICONE
  25. WELLBUTRIN [Suspect]
     Active Substance: BUPROPION HYDROCHLORIDE
     Indication: STRESS
     Dosage: ?          QUANTITY:?/ FAME;?
     Route: 048
     Dates: start: 2005, end: 2009
  26. FUROSEMIDE. [Concomitant]
     Active Substance: FUROSEMIDE
  27. GABAPENTIN. [Concomitant]
     Active Substance: GABAPENTIN
  28. PANTOPRAZOLE [Concomitant]
     Active Substance: PANTOPRAZOLE
  29. NAMENDA [Concomitant]
     Active Substance: MEMANTINE HYDROCHLORIDE

REACTIONS (7)
  - Oral mucosal eruption [None]
  - Tooth loss [None]
  - Rubber sensitivity [None]
  - Skin exfoliation [None]
  - Urticaria [None]
  - Oral mucosal blistering [None]
  - Anaemia [None]

NARRATIVE: CASE EVENT DATE: 2009
